FAERS Safety Report 22606464 (Version 1)
Quarter: 2023Q2

REPORT INFORMATION
  Report Type: Spontaneous
  Country: FR (occurrence: FR)
  Receive Date: 20230615
  Receipt Date: 20230615
  Transmission Date: 20230722
  Serious: Yes (Other)
  Sender: FDA-Public Use
  Company Number: None

PATIENT
  Age: 7 Month
  Sex: Female

DRUGS (1)
  1. STELARA [Suspect]
     Active Substance: USTEKINUMAB
     Indication: Psoriasis
     Route: 064
     Dates: start: 202101, end: 202111

REACTIONS (2)
  - Talipes [Not Recovered/Not Resolved]
  - Chromosomal microduplication [Not Recovered/Not Resolved]

NARRATIVE: CASE EVENT DATE: 20220101
